FAERS Safety Report 24747909 (Version 1)
Quarter: 2024Q4

REPORT INFORMATION
  Report Type: Spontaneous
  Country: US (occurrence: None)
  Receive Date: 20241217
  Receipt Date: 20241217
  Transmission Date: 20250115
  Serious: Yes (Disabling)
  Sender: Public
  Company Number: None

PATIENT
  Age: 40 Year
  Sex: Female

DRUGS (1)
  1. EMGALITY [Suspect]
     Active Substance: GALCANEZUMAB-GNLM
     Indication: Migraine
     Dates: start: 20241216

REACTIONS (3)
  - Heart rate increased [None]
  - Post procedural complication [None]
  - Adverse drug reaction [None]

NARRATIVE: CASE EVENT DATE: 20241217
